FAERS Safety Report 12928862 (Version 1)
Quarter: 2016Q4

REPORT INFORMATION
  Report Type: Report from Study
  Country: None (occurrence: US)
  Receive Date: 20161110
  Receipt Date: 20161110
  Transmission Date: 20170207
  Serious: Yes (Hospitalization, Other)
  Sender: FDA-Public Use
  Company Number: US-ABBVIE-16K-163-1769717-00

PATIENT
  Age: 38 Year
  Sex: Female
  Weight: 108.96 kg

DRUGS (1)
  1. HUMIRA [Suspect]
     Active Substance: ADALIMUMAB
     Indication: CROHN^S DISEASE
     Route: 058
     Dates: start: 20161018

REACTIONS (4)
  - Colonic fistula [Recovering/Resolving]
  - Crohn^s disease [Recovered/Resolved]
  - Wrong technique in product usage process [Unknown]
  - Colonic abscess [Recovered/Resolved]

NARRATIVE: CASE EVENT DATE: 2016
